FAERS Safety Report 8934872 (Version 3)
Quarter: 2012Q4

REPORT INFORMATION
  Report Type: Report from Study
  Country: CN (occurrence: CN)
  Receive Date: 20121129
  Receipt Date: 20121219
  Transmission Date: 20130627
  Serious: Yes (Hospitalization)
  Sender: FDA-Public Use
  Company Number: CN-NAPPMUNDI-GBR-2012-0012196

PATIENT
  Age: 45 Year
  Sex: Male
  Weight: 59 kg

DRUGS (3)
  1. OXY IR [Suspect]
     Indication: PAIN
     Dosage: 5mg and 10mg
     Route: 048
     Dates: start: 20110909, end: 20110910
  2. OXY IR [Suspect]
     Dosage: 5mg and 10mg
     Route: 048
     Dates: start: 20110911, end: 20110914
  3. ENALAPRIL [Concomitant]
     Indication: HYPERTENSION
     Dosage: 50 mg, daily

REACTIONS (1)
  - Intestinal obstruction [Recovered/Resolved]
